FAERS Safety Report 7046284-5 (Version None)
Quarter: 2010Q4

REPORT INFORMATION
  Report Type: 
  Country: None (occurrence: None)
  Receive Date: 20101014
  Receipt Date: 20101004
  Transmission Date: 20110411
  Serious: Yes (Other)
  Sender: FDA-Public Use
  Company Number: B0668560A

PATIENT
  Sex: Female

DRUGS (1)
  1. ARIXTRA [Suspect]
     Indication: THROMBOSIS PROPHYLAXIS
     Dosage: 5MG PER DAY
     Route: 058

REACTIONS (3)
  - LOWER GASTROINTESTINAL HAEMORRHAGE [None]
  - OVERDOSE [None]
  - POST PROCEDURAL HAEMATOMA [None]
